FAERS Safety Report 22935179 (Version 2)
Quarter: 2023Q4

REPORT INFORMATION
  Report Type: Spontaneous
  Country: US (occurrence: US)
  Receive Date: 20230912
  Receipt Date: 20231006
  Transmission Date: 20240109
  Serious: No
  Sender: FDA-Public Use
  Company Number: US-Blueprint Medicines Corporation-1437

PATIENT
  Sex: Male

DRUGS (1)
  1. AYVAKIT [Suspect]
     Active Substance: AVAPRITINIB
     Indication: Gastrointestinal stromal tumour
     Route: 065
     Dates: start: 20230814

REACTIONS (5)
  - Eye pruritus [Unknown]
  - Vision blurred [Unknown]
  - Adverse drug reaction [Unknown]
  - Dizziness [Unknown]
  - Intentional dose omission [Unknown]
